FAERS Safety Report 6143884-1 (Version None)
Quarter: 2009Q2

REPORT INFORMATION
  Report Type: 
  Country: None (occurrence: None)
  Receive Date: 20090406
  Receipt Date: 20090123
  Transmission Date: 20091009
  Serious: No
  Sender: FDA-Public Use
  Company Number: US-ELI_LILLY_AND_COMPANY-US200901004048

PATIENT
  Sex: Female

DRUGS (12)
  1. FORTEO [Suspect]
     Indication: COMPRESSION FRACTURE
     Dosage: 20 UG, DAILY (1/D)
     Route: 058
     Dates: start: 20090123
  2. CENTRUM SILVER [Concomitant]
  3. LAMICTAL [Concomitant]
     Dosage: UNK, DAILY (1/D)
  4. PROTONIX [Concomitant]
     Dosage: 40 MG, DAILY (1/D)
  5. TYLENOL /USA/ [Concomitant]
     Dosage: UNK, AS NEEDED
  6. ROBITUSSIN [Concomitant]
     Dosage: UNK, AS NEEDED
  7. DEPAKOTE [Concomitant]
     Dosage: 1000 MG, 2/D
  8. OSCAL [Concomitant]
     Dosage: 500 MG, 2/D
  9. POTASSIUM CHLORIDE [Concomitant]
     Dosage: 10 MEQ, 2/D
  10. DARVOCET-N 100 [Concomitant]
     Dosage: UNK, AS NEEDED
  11. FOSAMAX [Concomitant]
  12. PRILOSEC [Concomitant]

REACTIONS (1)
  - NO ADVERSE EVENT [None]
